FAERS Safety Report 19892762 (Version 5)
Quarter: 2024Q3

REPORT INFORMATION
  Report Type: Spontaneous
  Country: FR (occurrence: FR)
  Receive Date: 20210928
  Receipt Date: 20240716
  Transmission Date: 20241017
  Serious: Yes (Death, Life-Threatening, Hospitalization, Other)
  Sender: MYLAN
  Company Number: FR-SA-SAC20210514000061

PATIENT
  Age: 74 Year

DRUGS (39)
  1. FUROSEMIDE [Suspect]
     Active Substance: FUROSEMIDE
     Indication: Product used for unknown indication
     Dosage: 80 DOSAGE FORM (80 MG/ML)
     Route: 065
  2. CORDARONE [Suspect]
     Active Substance: AMIODARONE HYDROCHLORIDE
     Indication: Arrhythmia
     Dosage: 200 MG, QD (1 TABLET IN THE MORNING FOR 3 MONTHS EXCEPT SATURDAY AND SUNDAY)
     Route: 048
  3. CORDARONE [Suspect]
     Active Substance: AMIODARONE HYDROCHLORIDE
     Indication: Myocardial ischaemia
  4. METFORMIN HYDROCHLORIDE [Concomitant]
     Active Substance: METFORMIN HYDROCHLORIDE
     Indication: Type 2 diabetes mellitus
     Dosage: 500 MG, BID (1 TABLET IN THE MORNING AND 1 TABLET IN THE EVENING)
     Route: 048
  5. PRAVASTATIN [Concomitant]
     Active Substance: PRAVASTATIN
     Dosage: 20 MILLIGRAM, QD
     Route: 065
  6. KARDEGIC [Concomitant]
     Active Substance: ASPIRIN DL-LYSINE
     Dosage: UNK
     Route: 065
     Dates: start: 20170919
  7. NOREPINEPHRINE [Concomitant]
     Active Substance: NOREPINEPHRINE\NOREPINEPHRINE BITARTRATE
     Dosage: UNK
     Route: 065
  8. ACEBUTOLOL [Concomitant]
     Active Substance: ACEBUTOLOL
     Dosage: 0.5 DOSAGE FORM, QD (1/2 TABLET/DAY)
     Route: 065
  9. NOREPINEPHRINE [Concomitant]
     Active Substance: NOREPINEPHRINE\NOREPINEPHRINE BITARTRATE
     Dosage: UNK
     Route: 065
  10. TRACRIUM [Concomitant]
     Active Substance: ATRACURIUM BESYLATE
     Dosage: UNK
     Route: 065
  11. PIPERACILLIN SODIUM\TAZOBACTAM SODIUM [Concomitant]
     Active Substance: PIPERACILLIN SODIUM\TAZOBACTAM SODIUM
     Dosage: UNK
     Route: 065
  12. ADRENALIN HYDROCHLORIDE [Concomitant]
     Dosage: 1 MILLIGRAM
     Route: 065
  13. GLUCOPHAGE [Concomitant]
     Active Substance: METFORMIN HYDROCHLORIDE
     Indication: Type 2 diabetes mellitus
     Dosage: 500MG,BID HALF SCORED FILM-COATED TAB MORNING,HALF SCORED FILM-COATED TAB IN EVENING 1/2X2
     Route: 048
     Dates: start: 20170922
  14. SECTRAL [Concomitant]
     Active Substance: ACEBUTOLOL HYDROCHLORIDE
     Dosage: 0.5 DOSAGE FORM, BID (HALF FILM-COATED TABLET IN MORNING, HALF FILM-COATED TABLET IN EVENING)
     Route: 048
     Dates: start: 20170919
  15. PLAVIX [Concomitant]
     Active Substance: CLOPIDOGREL BISULFATE
     Dosage: 2 DOSAGE FORM, QD (2 FILM-COATED TABLETS IN THE MORNING FOR ONE MONTH THEN 1/D)
     Route: 048
     Dates: start: 20170920
  16. PRAVASTATINE ALTER [Concomitant]
     Dosage: 1 DOSAGE FORM, QD (1 TABLET IN THE EVENING)
     Route: 048
     Dates: start: 20170919
  17. AMIODARONE [Concomitant]
     Active Substance: AMIODARONE
     Dosage: 200 MILLIGRAM, QD
     Route: 065
  18. SPIRAMYCIN [Concomitant]
     Active Substance: SPIRAMYCIN
     Dosage: UNK
     Route: 065
     Dates: start: 20150104
  19. ARTOTEC [Concomitant]
     Active Substance: DICLOFENAC SODIUM\MISOPROSTOL
     Dosage: UNK
     Route: 065
     Dates: start: 20150617
  20. METHYLPREDNISOLONE [Concomitant]
     Active Substance: METHYLPREDNISOLONE
     Dosage: UNK
     Route: 065
  21. Lamaline [Concomitant]
     Dosage: UNK
     Route: 065
     Dates: start: 20150615
  22. NITROGLYCERIN [Concomitant]
     Active Substance: NITROGLYCERIN
     Dosage: UNK
     Route: 065
     Dates: start: 20160404
  23. TIXOCORTOL PIVALATE [Concomitant]
     Active Substance: TIXOCORTOL PIVALATE
     Dosage: UNK
     Route: 065
     Dates: start: 20160307
  24. DOLIPRANE [Concomitant]
     Active Substance: ACETAMINOPHEN
     Dosage: UNK
     Route: 065
     Dates: start: 20171228
  25. DOTAREM [Concomitant]
     Active Substance: GADOTERATE MEGLUMINE
     Dosage: UNK
     Route: 042
     Dates: start: 20171208
  26. CLARITHROMYCIN [Concomitant]
     Active Substance: CLARITHROMYCIN
     Dosage: UNK
     Route: 065
     Dates: start: 20161011
  27. LACTIBIANE REFERENCE [Concomitant]
     Dosage: UNK
     Route: 065
     Dates: start: 20171205
  28. ATROPINE [Concomitant]
     Active Substance: ATROPINE
     Dosage: UNK
     Route: 065
  29. AMOXICILLIN [Concomitant]
     Active Substance: AMOXICILLIN
     Dosage: UNK
     Route: 065
     Dates: start: 20160307
  30. Donormyl [Concomitant]
     Dosage: UNK
     Route: 065
     Dates: start: 20171228
  31. VAXIGRIP [Concomitant]
     Active Substance: INFLUENZA VIRUS VACCINE
     Dosage: UNK
     Route: 065
     Dates: start: 20171108
  32. POTASSIUM CHLORIDE [Concomitant]
     Active Substance: POTASSIUM CHLORIDE
     Dosage: UNK, TOTAL (1X)
     Route: 065
     Dates: start: 20180104
  33. METOCLOPRAMIDE [Concomitant]
     Active Substance: METOCLOPRAMIDE
     Dosage: UNK
     Route: 065
     Dates: start: 20171205
  34. SPIRAMYCIN [Concomitant]
     Active Substance: SPIRAMYCIN
     Dosage: UNK
     Route: 065
  35. RACECADOTRIL [Concomitant]
     Active Substance: RACECADOTRIL
     Dosage: UNK
     Route: 065
     Dates: start: 20171205
  36. CLAFORAN [Concomitant]
     Active Substance: CEFOTAXIME SODIUM
     Dosage: UNK
     Route: 065
  37. Biocalyptol [Concomitant]
     Dosage: UNK
     Route: 065
     Dates: start: 20150104
  38. ASPIRIN\CLOPIDOGREL [Concomitant]
     Active Substance: ASPIRIN\CLOPIDOGREL
     Dosage: UNK
     Route: 065
     Dates: start: 20180103
  39. PREDNISOLONE [Concomitant]
     Active Substance: PREDNISOLONE
     Dosage: UNK
     Route: 065
     Dates: start: 20150104

REACTIONS (33)
  - Condition aggravated [Fatal]
  - Cardiac arrest [Fatal]
  - Acute respiratory failure [Fatal]
  - Acute respiratory distress syndrome [Fatal]
  - Multiple organ dysfunction syndrome [Fatal]
  - Anaphylactoid reaction [Fatal]
  - Anuria [Fatal]
  - Hypoxia [Fatal]
  - Orthopnoea [Fatal]
  - Dyspnoea [Fatal]
  - Crepitations [Fatal]
  - Asthenia [Fatal]
  - Cough [Fatal]
  - Rash [Fatal]
  - Weight decreased [Fatal]
  - C-reactive protein increased [Fatal]
  - Chest pain [Unknown]
  - Malaise [Unknown]
  - Palpitations [Unknown]
  - Pneumonia [Unknown]
  - Chronic respiratory disease [Unknown]
  - Coronary artery disease [Unknown]
  - Pneumonitis [Not Recovered/Not Resolved]
  - Tachypnoea [Unknown]
  - Productive cough [Unknown]
  - Use of accessory respiratory muscles [Unknown]
  - Pyrexia [Unknown]
  - Lymphopenia [Unknown]
  - Pain [Unknown]
  - Coronavirus infection [Unknown]
  - Haemodynamic instability [Unknown]
  - Bradycardia [Unknown]
  - Secretion discharge [Unknown]

NARRATIVE: CASE EVENT DATE: 20170901
